FAERS Safety Report 7294228-3 (Version None)
Quarter: 2011Q1

REPORT INFORMATION
  Report Type: 
  Country: None (occurrence: None)
  Receive Date: 20110215
  Receipt Date: 20110208
  Transmission Date: 20110831
  Serious: Yes (Hospitalization)
  Sender: FDA-Public Use
  Company Number: US-B.I. PHARMACEUTICALS,INC./RIDGEFIELD-2011-BP-00277BP

PATIENT
  Sex: Female

DRUGS (1)
  1. PRADAXA [Suspect]
     Indication: ATRIAL FIBRILLATION
     Dosage: 150 MG

REACTIONS (11)
  - NAUSEA [None]
  - COUGH [None]
  - CARDIAC FAILURE CONGESTIVE [None]
  - BLOOD CREATINE PHOSPHOKINASE INCREASED [None]
  - DEMENTIA [None]
  - HYPOTENSION [None]
  - ACUTE MYOCARDIAL INFARCTION [None]
  - HYPERHIDROSIS [None]
  - TROPONIN INCREASED [None]
  - CHEST PAIN [None]
  - ELECTROCARDIOGRAM ST SEGMENT ABNORMAL [None]
